FAERS Safety Report 7360384-1 (Version None)
Quarter: 2011Q1

REPORT INFORMATION
  Report Type: 
  Country: None (occurrence: None)
  Receive Date: 20110318
  Receipt Date: 20110224
  Transmission Date: 20110831
  Serious: Yes (Hospitalization)
  Sender: FDA-Public Use
  Company Number: US-BAYER-201024757NA

PATIENT
  Sex: Female
  Weight: 65.909 kg

DRUGS (14)
  1. PROTONIX [Concomitant]
     Indication: GASTROOESOPHAGEAL REFLUX DISEASE
     Dates: start: 20070601
  2. ALPRAZOLAM [Concomitant]
     Indication: ANXIETY
     Dates: end: 20080201
  3. IBUPROFEN [Concomitant]
     Dates: start: 20060901
  4. CARAFATE [Concomitant]
     Indication: GASTROOESOPHAGEAL REFLUX DISEASE
  5. UNCODEABLE ^UNCLASSIFIABLE^ [Concomitant]
  6. POLICOSANOL [Concomitant]
     Indication: GASTROOESOPHAGEAL REFLUX DISEASE
  7. YASMIN [Suspect]
     Dosage: UNK
     Route: 048
     Dates: start: 20040501, end: 20080115
  8. REGLAN [Concomitant]
     Indication: GASTROOESOPHAGEAL REFLUX DISEASE
  9. YASMIN [Suspect]
     Indication: ORAL CONTRACEPTION
     Route: 048
     Dates: start: 20020227, end: 20021001
  10. YAZ [Suspect]
     Indication: ORAL CONTRACEPTION
     Route: 048
     Dates: start: 20080129, end: 20091101
  11. FUROSEMIDE [Concomitant]
     Dates: start: 20060401
  12. XANAX [Concomitant]
     Indication: URTICARIA
  13. NEXIUM [Concomitant]
     Indication: GASTROOESOPHAGEAL REFLUX DISEASE
  14. FLONASE [Concomitant]
     Indication: MULTIPLE ALLERGIES
     Dates: start: 19970101

REACTIONS (4)
  - ABDOMINAL PAIN UPPER [None]
  - CHOLECYSTITIS CHRONIC [None]
  - NAUSEA [None]
  - VOMITING [None]
